FAERS Safety Report 4932521-7 (Version None)
Quarter: 2006Q1

REPORT INFORMATION
  Report Type: 
  Country: None (occurrence: None)
  Receive Date: 20060301
  Receipt Date: 20060205
  Transmission Date: 20060701
  Serious: Yes (Hospitalization)
  Sender: FDA-Public Use
  Company Number: 2005119968

PATIENT
  Age: 55 Year
  Sex: Male

DRUGS (9)
  1. TAHOR (ATORVASTATIN) [Suspect]
     Indication: ILL-DEFINED DISORDER
     Dosage: 10 MG (DAILY), ORAL
     Route: 048
     Dates: start: 20030801, end: 20050806
  2. CORDARONE [Suspect]
     Indication: ARRHYTHMIA
     Dosage: 100 MG (1 IN 1 D), ORAL
     Route: 048
     Dates: start: 20050620, end: 20050806
  3. CORDARONE [Suspect]
     Indication: ATRIAL FIBRILLATION
     Dosage: 100 MG (1 IN 1 D), ORAL
     Route: 048
     Dates: start: 20050620, end: 20050806
  4. PREVISCAN (FLUINDIONE) [Suspect]
     Indication: ARRHYTHMIA
     Dosage: ORAL
     Route: 048
     Dates: start: 20050620
  5. INIPOMP (PANTOPRAZOLE) [Suspect]
     Indication: GASTROOESOPHAGEAL REFLUX DISEASE
     Dosage: 40 MG (1 IN 1 D), ORAL
     Route: 048
     Dates: start: 20050215
  6. INIPOMP (PANTOPRAZOLE) [Suspect]
     Indication: GASTROOESOPHAGITIS
     Dosage: 40 MG (1 IN 1 D), ORAL
     Route: 048
     Dates: start: 20050215
  7. METFORMIN HCL [Concomitant]
  8. SECTRAL [Concomitant]
  9. ASPEGIC 1000 [Concomitant]

REACTIONS (5)
  - ATRIAL FIBRILLATION [None]
  - DRUG INTERACTION [None]
  - INTERNATIONAL NORMALISED RATIO INCREASED [None]
  - REFLUX OESOPHAGITIS [None]
  - RHABDOMYOLYSIS [None]
